FAERS Safety Report 6138787-2 (Version None)
Quarter: 2009Q1

REPORT INFORMATION
  Report Type: 
  Country: None (occurrence: None)
  Receive Date: 20090331
  Receipt Date: 20090326
  Transmission Date: 20090719
  Serious: Yes (Death, Hospitalization)
  Sender: FDA-Public Use
  Company Number: PHHY2009GB11466

PATIENT
  Age: 19 Year

DRUGS (5)
  1. CYCLOSPORINE [Suspect]
     Indication: STEM CELL TRANSPLANT
  2. CYCLOSPORINE [Suspect]
     Indication: PROPHYLAXIS AGAINST GRAFT VERSUS HOST DISEASE
  3. CAMPATH [Concomitant]
     Dosage: 100 MG
  4. BUSULPHAN [Concomitant]
     Dosage: 16 MG/KG
  5. MELPHALAN [Concomitant]
     Dosage: 140 MG/M^2

REACTIONS (7)
  - ARTERIAL HAEMORRHAGE [None]
  - PNEUMONITIS [None]
  - SCEDOSPORIUM INFECTION [None]
  - SYSTEMIC MYCOSIS [None]
  - TRACHEOSTOMY [None]
  - TRACHEOSTOMY MALFUNCTION [None]
  - ULCER [None]
